FAERS Safety Report 8341676-6 (Version None)
Quarter: 2012Q2

REPORT INFORMATION
  Report Type: 
  Country: None (occurrence: None)
  Receive Date: 20120507
  Receipt Date: 20120503
  Transmission Date: 20120825
  Serious: Yes (Death)
  Sender: FDA-Public Use
  Company Number: CO-PFIZER INC-2012109897

PATIENT
  Sex: Female

DRUGS (5)
  1. LOSARTAN [Concomitant]
     Dosage: 50 MG, EVERY 12 HOURS
  2. FUROSEMIDE [Concomitant]
     Dosage: 40 MG, ONCE DAILY
  3. ASPIRIN [Concomitant]
     Dosage: UNK
  4. LIPITOR [Suspect]
     Dosage: 20 MG, ONCE DAILY
     Route: 048
     Dates: start: 20041016
  5. NIFEDIPINE [Concomitant]
     Dosage: 30 MG, EVERY 12 HOURS

REACTIONS (1)
  - DEATH [None]
